FAERS Safety Report 20365257 (Version 4)
Quarter: 2022Q1

REPORT INFORMATION
  Report Type: Report from Study
  Country: BR (occurrence: BR)
  Receive Date: 20220122
  Receipt Date: 20220330
  Transmission Date: 20220423
  Serious: No
  Sender: FDA-Public Use
  Company Number: BR-NOVARTISPH-NVSC2021BR128835

PATIENT
  Age: 57 Year
  Sex: Male

DRUGS (2)
  1. COSENTYX [Suspect]
     Active Substance: SECUKINUMAB
     Indication: Psoriasis
     Dosage: 300 MG, QW
     Route: 065
     Dates: start: 20210524, end: 20210621
  2. COSENTYX [Suspect]
     Active Substance: SECUKINUMAB
     Dosage: UNK
     Route: 065
     Dates: start: 20210531

REACTIONS (6)
  - Pain in extremity [Recovered/Resolved]
  - Peripheral swelling [Recovered/Resolved]
  - Headache [Recovered/Resolved]
  - Malaise [Recovered/Resolved]
  - Psoriasis [Not Recovered/Not Resolved]
  - Pruritus [Recovered/Resolved]

NARRATIVE: CASE EVENT DATE: 20210525
